FAERS Safety Report 4288872-5 (Version None)
Quarter: 2004Q1

REPORT INFORMATION
  Report Type: 
  Country: None (occurrence: None)
  Receive Date: 20040205
  Receipt Date: 20040113
  Transmission Date: 20041129
  Serious: Yes (Other)
  Sender: FDA-Public Use
  Company Number: EWC040137724

PATIENT
  Age: 64 Year
  Sex: Female

DRUGS (1)
  1. PERMAX [Suspect]
     Indication: PARKINSON'S DISEASE
     Dosage: 3 MG/DAY
     Dates: start: 20020701

REACTIONS (1)
  - AORTIC VALVE INCOMPETENCE [None]
